FAERS Safety Report 8445681-0 (Version None)
Quarter: 2012Q2

REPORT INFORMATION
  Report Type: 
  Country: None (occurrence: None)
  Receive Date: 20120611
  Receipt Date: 20120529
  Transmission Date: 20120825
  Serious: Yes (Other)
  Sender: FDA-Public Use
  Company Number: FK201201522

PATIENT
  Age: 35 Year
  Sex: Female

DRUGS (3)
  1. OXALIPLATIN [Suspect]
     Indication: COLON CANCER STAGE IV
  2. FLUOROURACIL [Suspect]
     Indication: COLON CANCER STAGE IV
  3. LEUCOVORIN CALCIUM [Concomitant]

REACTIONS (5)
  - POSTERIOR REVERSIBLE ENCEPHALOPATHY SYNDROME [None]
  - VISUAL IMPAIRMENT [None]
  - HYPERTENSION [None]
  - CONVULSION [None]
  - HEADACHE [None]
